FAERS Safety Report 7274342-9 (Version None)
Quarter: 2011Q1

REPORT INFORMATION
  Report Type: 
  Country: None (occurrence: None)
  Receive Date: 20110131
  Receipt Date: 20110131
  Transmission Date: 20110831
  Serious: No
  Sender: FDA-Public Use
  Company Number: None

PATIENT
  Age: 51 Year
  Sex: Female
  Weight: 83.9154 kg

DRUGS (1)
  1. RECLAST [Suspect]
     Indication: OSTEOPOROSIS
     Dosage: 1 IV INFUSION 1 TIME EACH YEAR IV
     Route: 042
     Dates: start: 20110124, end: 20110124

REACTIONS (4)
  - PAIN [None]
  - MOBILITY DECREASED [None]
  - VOMITING [None]
  - PAINFUL RESPIRATION [None]
